FAERS Safety Report 22639588 (Version 5)
Quarter: 2023Q4

REPORT INFORMATION
  Report Type: Report from Study
  Country: GB (occurrence: GB)
  Receive Date: 20230626
  Receipt Date: 20231201
  Transmission Date: 20240110
  Serious: Yes (Hospitalization, Other)
  Sender: FDA-Public Use
  Company Number: GB-002147023-NVSC2023GB143793

PATIENT
  Age: 61 Year
  Sex: Female

DRUGS (2)
  1. MAYZENT [Suspect]
     Active Substance: SIPONIMOD
     Indication: Multiple sclerosis
     Dosage: 2 MG, QD
     Route: 048
     Dates: start: 20230525
  2. MAYZENT [Suspect]
     Active Substance: SIPONIMOD
     Dosage: UNK
     Route: 048

REACTIONS (10)
  - Pneumonia [Unknown]
  - Fall [Unknown]
  - Peripheral swelling [Unknown]
  - Hemiparesis [Unknown]
  - Thrombosis [Unknown]
  - Pain [Unknown]
  - Musculoskeletal stiffness [Unknown]
  - Diarrhoea [Unknown]
  - Oedema peripheral [Unknown]
  - Pain in extremity [Unknown]
